FAERS Safety Report 7448400-X (Version None)
Quarter: 2011Q2

REPORT INFORMATION
  Report Type: 
  Country: None (occurrence: None)
  Receive Date: 20110429
  Receipt Date: 20100517
  Transmission Date: 20111010
  Serious: No
  Sender: FDA-Public Use
  Company Number: US-ASTRAZENECA-2010SE22387

PATIENT
  Age: 26 Year
  Sex: Male
  Weight: 80.7 kg

DRUGS (2)
  1. NEXIUM [Suspect]
     Indication: GASTROOESOPHAGEAL REFLUX DISEASE
     Route: 048
  2. LISINOPRIL [Concomitant]

REACTIONS (3)
  - DRUG DOSE OMISSION [None]
  - GASTROINTESTINAL INJURY [None]
  - DYSPEPSIA [None]
